FAERS Safety Report 10004759 (Version 4)
Quarter: 2014Q2

REPORT INFORMATION
  Report Type: Spontaneous
  Country: US (occurrence: US)
  Receive Date: 20140312
  Receipt Date: 20140516
  Transmission Date: 20141212
  Serious: Yes (Hospitalization)
  Sender: FDA-Public Use
  Company Number: US-GLAXOSMITHKLINE-A1064566A

PATIENT
  Age: 55 Year
  Sex: Male

DRUGS (6)
  1. LOVAZA [Suspect]
     Indication: CARDIOVASCULAR DISORDER
     Dosage: 2G TWICE PER DAY
     Route: 065
     Dates: start: 20121127
  2. ISOSORBIDE [Concomitant]
  3. METOPROLOL [Concomitant]
  4. PRAVASTATIN [Concomitant]
  5. BENAZEPRIL [Concomitant]
  6. BABY ASPIRIN [Concomitant]

REACTIONS (3)
  - Myocardial infarction [Recovered/Resolved]
  - Coronary arterial stent insertion [Recovered/Resolved]
  - Drug administration error [Unknown]
